FAERS Safety Report 4718622-7 (Version None)
Quarter: 2005Q3

REPORT INFORMATION
  Report Type: 
  Country: None (occurrence: None)
  Receive Date: 20050720
  Receipt Date: 20050329
  Transmission Date: 20060218
  Serious: Yes (Life-Threatening, Hospitalization)
  Sender: FDA-Public Use
  Company Number: JP-GLAXOSMITHKLINE-B0376465A

PATIENT
  Age: 69 Year
  Sex: Female
  Weight: 40 kg

DRUGS (9)
  1. PAXIL [Suspect]
     Indication: DEPRESSION
     Dosage: 10MG TWICE PER DAY
     Route: 048
     Dates: end: 20050322
  2. DOGMATYL [Suspect]
     Indication: DRUG USE FOR UNKNOWN INDICATION
     Dosage: 50MG PER DAY
     Route: 048
     Dates: end: 20050323
  3. PIVMECILLINAM HYDROCHLORIDE [Suspect]
     Indication: PERITONITIS
     Route: 048
     Dates: start: 20050314
  4. KAMAG G [Concomitant]
     Indication: CONSTIPATION
     Dosage: 1G THREE TIMES PER DAY
     Route: 048
  5. PURSENNID [Concomitant]
     Indication: CONSTIPATION
     Dosage: 1U THREE TIMES PER DAY
     Route: 048
  6. GASMOTIN [Concomitant]
     Route: 048
     Dates: start: 20050226
  7. BERIZYM [Concomitant]
     Route: 048
     Dates: start: 20050226
  8. STOMILASE [Concomitant]
     Route: 048
     Dates: start: 20050226
  9. LENDORMIN [Concomitant]
     Indication: INSOMNIA
     Route: 048
     Dates: start: 20050121

REACTIONS (2)
  - HEPATIC FAILURE [None]
  - JAUNDICE [None]
